FAERS Safety Report 15440612 (Version 4)
Quarter: 2019Q2

REPORT INFORMATION
  Report Type: Spontaneous
  Country: BG (occurrence: BG)
  Receive Date: 20180928
  Receipt Date: 20190520
  Transmission Date: 20190711
  Serious: Yes (Hospitalization, Other)
  Sender: FDA-Public Use
  Company Number: BG-SA-2018SA266747

PATIENT
  Age: 64 Year
  Sex: Female
  Weight: 60 kg

DRUGS (4)
  1. MYOZYME [Suspect]
     Active Substance: ALGLUCOSIDASE ALFA
     Indication: GLYCOGEN STORAGE DISEASE TYPE II
     Dosage: 110 MG, TWO WEEKS
     Route: 041
     Dates: start: 20130828
  2. VITAMIN C [Concomitant]
     Active Substance: ASCORBIC ACID
     Dosage: 100 UG, QD
     Route: 065
     Dates: start: 2015
  3. CONCOR [Concomitant]
     Active Substance: BISOPROLOL FUMARATE
     Dosage: 5 UG, QD
     Dates: start: 2014
  4. CHLOPHAZOLIN [Concomitant]
     Active Substance: CLONIDINE HYDROCHLORIDE
     Dosage: UNK
     Route: 065
     Dates: start: 2014

REACTIONS (2)
  - Peritonitis [Recovered/Resolved]
  - Thrombosis mesenteric vessel [Recovered/Resolved]

NARRATIVE: CASE EVENT DATE: 20180923
